FAERS Safety Report 17579434 (Version 1)
Quarter: 2020Q1

REPORT INFORMATION
  Report Type: Spontaneous
  Country: CN (occurrence: CN)
  Receive Date: 20200325
  Receipt Date: 20200325
  Transmission Date: 20200409
  Serious: Yes (Other)
  Sender: FDA-Public Use
  Company Number: CN-ROCHE-2569036

PATIENT
  Age: 51 Year
  Sex: Female
  Weight: 70 kg

DRUGS (13)
  1. RESERPINE. [Concomitant]
     Active Substance: RESERPINE
     Indication: HYPERTENSION
     Route: 048
  2. XELODA [Suspect]
     Active Substance: CAPECITABINE
     Indication: BREAST CANCER
     Dosage: 2.0G  IN THE MORNING, 1.5G IN THE EVENING, DAY 1-14, 21 DAYS A CYCLE
     Route: 048
     Dates: start: 20181229, end: 20190506
  3. DOCETAXEL. [Concomitant]
     Active Substance: DOCETAXEL
     Indication: METASTASES TO LUNG
     Dosage: DAY 1, 21DAYS A CYCLE
     Route: 041
     Dates: start: 20180510, end: 20181205
  4. DOCETAXEL. [Concomitant]
     Active Substance: DOCETAXEL
     Dosage: DAY 1, 21DAYS A CYCLE
     Route: 041
     Dates: start: 20200118
  5. GEMCITABINE. [Concomitant]
     Active Substance: GEMCITABINE
     Indication: METASTASES TO LUNG
     Dosage: DAY 1, 8 , 21 DAYS A CYCLE
     Route: 041
     Dates: start: 20190530, end: 20190908
  6. DOCETAXEL. [Concomitant]
     Active Substance: DOCETAXEL
     Dosage: DAY 1, 21DAYS A CYCLE
     Route: 041
     Dates: start: 20200222
  7. LOBAPLATIN [Concomitant]
     Active Substance: LOBAPLATIN
     Indication: METASTASES TO LUNG
     Dosage: DAY 2,21DAYS A CYCLE
     Route: 041
     Dates: start: 20200118
  8. GEMCITABINE. [Concomitant]
     Active Substance: GEMCITABINE
     Indication: BREAST CANCER
  9. TAMOXIFEN [Concomitant]
     Active Substance: TAMOXIFEN
     Route: 065
     Dates: start: 20191122
  10. LOBAPLATIN [Concomitant]
     Active Substance: LOBAPLATIN
     Indication: BREAST CANCER
     Dosage: DAY 2, 21DAYS A CYCLE
     Route: 041
     Dates: start: 20200222
  11. XELODA [Suspect]
     Active Substance: CAPECITABINE
     Indication: METASTASES TO LUNG
     Dosage: 2.0G  IN THE MORNING, 1.5G IN THE EVENING, DAY 1-14, 21 DAYS A CYCLE
     Route: 048
     Dates: start: 20180510, end: 20181205
  12. DOCETAXEL. [Concomitant]
     Active Substance: DOCETAXEL
     Indication: BREAST CANCER
     Dosage: DAY 1, 21DAYS A CYCLE
     Route: 041
     Dates: start: 20190530, end: 20190908
  13. TAMOXIFEN [Concomitant]
     Active Substance: TAMOXIFEN
     Route: 048
     Dates: start: 20190928, end: 20191119

REACTIONS (2)
  - Asthenia [Unknown]
  - Urinary retention [Unknown]

NARRATIVE: CASE EVENT DATE: 20200304
